FAERS Safety Report 19011761 (Version 2)
Quarter: 2021Q1

REPORT INFORMATION
  Report Type: Spontaneous
  Country: FR (occurrence: FR)
  Receive Date: 20210316
  Receipt Date: 20210324
  Transmission Date: 20210420
  Serious: Yes (Other)
  Sender: FDA-Public Use
  Company Number: FR-BRISTOL-MYERS SQUIBB COMPANY-BMS-2021-021857

PATIENT
  Age: 44 Year
  Sex: Female

DRUGS (7)
  1. EMTRICITABINE;TENOFOVIR [Suspect]
     Active Substance: EMTRICITABINE\TENOFOVIR
     Indication: HEPATITIS B
     Dosage: UNK
     Route: 065
     Dates: start: 2013
  2. EMTRICITABINE;TENOFOVIR [Suspect]
     Active Substance: EMTRICITABINE\TENOFOVIR
     Indication: HIV INFECTION
  3. RITONAVIR. [Interacting]
     Active Substance: RITONAVIR
     Indication: HIV INFECTION
  4. RITONAVIR. [Interacting]
     Active Substance: RITONAVIR
     Indication: HEPATITIS B
     Dosage: UNK
     Route: 048
     Dates: start: 2013
  5. TRIAMCINOLONE ACETONIDE. [Suspect]
     Active Substance: TRIAMCINOLONE ACETONIDE
     Indication: EPICONDYLITIS
     Route: 052
     Dates: start: 201910
  6. DARUNAVIR [Suspect]
     Active Substance: DARUNAVIR
     Indication: HIV INFECTION
     Dosage: UNK
     Route: 065
     Dates: start: 2013
  7. DARUNAVIR [Suspect]
     Active Substance: DARUNAVIR
     Indication: HEPATITIS B

REACTIONS (5)
  - Drug interaction [Recovering/Resolving]
  - Secondary adrenocortical insufficiency [Recovered/Resolved]
  - Hyperadrenocorticism [Recovered/Resolved]
  - Kaposi^s sarcoma [Recovering/Resolving]
  - Intentional product use issue [Unknown]

NARRATIVE: CASE EVENT DATE: 201912
